FAERS Safety Report 20938847 (Version 2)
Quarter: 2022Q3

REPORT INFORMATION
  Report Type: Report from Study
  Country: JP (occurrence: JP)
  Receive Date: 20220609
  Receipt Date: 20220907
  Transmission Date: 20221027
  Serious: Yes (Hospitalization)
  Sender: FDA-Public Use
  Company Number: JP-BIOGEN-2022BI01130040

PATIENT
  Sex: Female
  Weight: 16.3 kg

DRUGS (3)
  1. SPINRAZA [Suspect]
     Active Substance: NUSINERSEN
     Indication: Spinal muscular atrophy
     Route: 050
     Dates: start: 20180308
  2. SPINRAZA [Suspect]
     Active Substance: NUSINERSEN
     Route: 050
     Dates: start: 20211214, end: 20211214
  3. CITOSOL [Concomitant]
     Active Substance: THIAMYLAL SODIUM
     Indication: Anaesthesia procedure
     Dosage: DOSE PER ADMINISTRATION: 2-5 MG/KG
     Route: 050

REACTIONS (2)
  - Scoliosis [Unknown]
  - Respiratory disorder [Unknown]
